FAERS Safety Report 7804297-7 (Version None)
Quarter: 2011Q4

REPORT INFORMATION
  Report Type: 
  Country: None (occurrence: None)
  Receive Date: 20111010
  Receipt Date: 20110929
  Transmission Date: 20120403
  Serious: Yes (Hospitalization)
  Sender: FDA-Public Use
  Company Number: CZ-SANOFI-AVENTIS-2011SA060291

PATIENT
  Age: 81 Year
  Sex: Male
  Weight: 102 kg

DRUGS (8)
  1. FUROSEMIDE [Concomitant]
  2. PROPAFENONE HCL [Concomitant]
  3. METOPROLOL TARTRATE [Concomitant]
  4. DIGOXIN [Concomitant]
  5. WARFARIN SODIUM [Concomitant]
  6. THYROXIN [Concomitant]
  7. DRONEDARONE HCL [Suspect]
     Indication: ATRIAL FIBRILLATION
     Route: 048
     Dates: start: 20101215, end: 20110711
  8. ATORVASTATIN [Concomitant]

REACTIONS (1)
  - CARDIAC FAILURE [None]
